FAERS Safety Report 8429883-5 (Version None)
Quarter: 2012Q2

REPORT INFORMATION
  Report Type: 
  Country: None (occurrence: None)
  Receive Date: 20120612
  Receipt Date: 20120507
  Transmission Date: 20120825
  Serious: Yes (Life-Threatening, Hospitalization, Other)
  Sender: FDA-Public Use
  Company Number: FR-ASTRAZENECA-2012SE29304

PATIENT
  Age: 58 Year
  Sex: Female

DRUGS (17)
  1. METHOTREXATE SODIUM [Suspect]
     Indication: RHEUMATOID ARTHRITIS
     Route: 058
     Dates: start: 19970101
  2. ACETAMINOPHEN [Concomitant]
  3. VOLTAREN [Concomitant]
  4. LYRICA [Suspect]
     Indication: PAIN
     Route: 048
     Dates: start: 20100101, end: 20120315
  5. VALSARTAN [Concomitant]
  6. PREDNISONE TAB [Concomitant]
  7. ZOLPIDEM [Concomitant]
  8. ACTONEL [Suspect]
     Dates: start: 20100101, end: 20120315
  9. ESCITALOPRAM [Concomitant]
     Indication: DEPRESSION
     Dates: start: 20120302, end: 20120315
  10. FELODIPINE [Concomitant]
  11. FOLIC ACID [Concomitant]
  12. ENBREL [Suspect]
     Indication: RHEUMATOID ARTHRITIS
     Route: 058
     Dates: start: 20111018
  13. MABTHERA [Suspect]
     Indication: RHEUMATOID ARTHRITIS
     Dates: start: 20091001, end: 20111001
  14. SULFARLEM [Concomitant]
  15. NEXIUM [Suspect]
     Route: 048
     Dates: start: 20100101
  16. XANAX [Concomitant]
     Dates: start: 20120317
  17. AMITRIPTYLINE HYDROCHLORIDE [Suspect]
     Indication: DEPRESSION
     Route: 048

REACTIONS (10)
  - PAIN [None]
  - DEPRESSION [None]
  - SUICIDE ATTEMPT [None]
  - NEUTROPENIA [None]
  - CHILLS [None]
  - AGITATION [None]
  - ASTHENIA [None]
  - OEDEMA PERIPHERAL [None]
  - HEADACHE [None]
  - AGRANULOCYTOSIS [None]
